FAERS Safety Report 13720390 (Version 1)
Quarter: 2017Q3

REPORT INFORMATION
  Report Type: Spontaneous
  Country: US (occurrence: US)
  Receive Date: 20170706
  Receipt Date: 20170706
  Transmission Date: 20171127
  Serious: Yes (Life-Threatening)
  Sender: FDA-Public Use
  Company Number: US-ALVOGEN-2017-ALVOGEN-092608

PATIENT
  Age: 22 Year
  Sex: Female

DRUGS (2)
  1. BUPROPION. [Suspect]
     Active Substance: BUPROPION
     Indication: PRODUCT USED FOR UNKNOWN INDICATION
     Route: 048
  2. NORTRIPTYLINE [Concomitant]
     Active Substance: NORTRIPTYLINE
     Indication: PRODUCT USED FOR UNKNOWN INDICATION

REACTIONS (4)
  - Seizure [Unknown]
  - Toxicity to various agents [Unknown]
  - Status epilepticus [Unknown]
  - Hypotension [Unknown]
